FAERS Safety Report 20047940 (Version 1)
Quarter: 2021Q4

REPORT INFORMATION
  Report Type: Spontaneous
  Country: US (occurrence: US)
  Receive Date: 20211109
  Receipt Date: 20211109
  Transmission Date: 20220303
  Serious: Yes (Other)
  Sender: FDA-Public Use
  Company Number: US-TAKEDA-2021TUS067084

PATIENT
  Age: 61 Year
  Sex: Male

DRUGS (4)
  1. CARBAMAZEPINE [Suspect]
     Active Substance: CARBAMAZEPINE
     Indication: Pericardial haemorrhage
     Dosage: UNK
     Route: 065
  2. CARBAMAZEPINE [Suspect]
     Active Substance: CARBAMAZEPINE
     Indication: Pericarditis
  3. COLCHICINE [Suspect]
     Active Substance: COLCHICINE
     Indication: Pericardial haemorrhage
     Dosage: 0.6 MILLIGRAM, BID
     Route: 065
  4. COLCHICINE [Suspect]
     Active Substance: COLCHICINE
     Indication: Pericarditis

REACTIONS (6)
  - Acute generalised exanthematous pustulosis [Unknown]
  - Off label use [Unknown]
  - Drug level below therapeutic [Unknown]
  - Abdominal discomfort [Unknown]
  - Nausea [Unknown]
  - Drug interaction [Unknown]
